FAERS Safety Report 15490176 (Version 1)
Quarter: 2018Q4

REPORT INFORMATION
  Report Type: Spontaneous
  Country: ES (occurrence: ES)
  Receive Date: 20181011
  Receipt Date: 20181011
  Transmission Date: 20190205
  Serious: Yes (Other)
  Sender: FDA-Public Use
  Company Number: ES-MYLANLABS-2018M1075306

PATIENT
  Age: 63 Year
  Sex: Male

DRUGS (3)
  1. TEMOZOLOMIDE. [Suspect]
     Active Substance: TEMOZOLOMIDE
     Indication: PHAEOCHROMOCYTOMA
     Dosage: 75 MG/M2, CYCLE 3 WEEKS ON TREATMENT FOLLOWED BY 1 WEEK OFF TREATMENT (21/28- DAY REGIMEN)
     Dates: start: 201512, end: 201702
  2. ZOLEDRONIC ACID [Concomitant]
     Active Substance: ZOLEDRONIC ACID
     Indication: PHAEOCHROMOCYTOMA
     Dosage: 4 MG, Q28D
     Dates: start: 201502
  3. SOMATULINE                         /01330101/ [Concomitant]
     Active Substance: LANREOTIDE ACETATE
     Indication: PHAEOCHROMOCYTOMA
     Dosage: 120 MG, Q2W (14 DAYS)
     Dates: start: 201502

REACTIONS (2)
  - Lymphopenia [Unknown]
  - Off label use [Unknown]
